FAERS Safety Report 9528279 (Version 5)
Quarter: 2014Q3

REPORT INFORMATION
  Report Type: Spontaneous
  Country: US (occurrence: US)
  Receive Date: 20130917
  Receipt Date: 20140916
  Transmission Date: 20150326
  Serious: Yes (Hospitalization, Disabling, Other)
  Sender: FDA-Public Use
  Company Number: US-009507513-1309USA005388

PATIENT
  Sex: Female
  Weight: 54.42 kg

DRUGS (6)
  1. ALENDRONATE SODIUM. [Suspect]
     Active Substance: ALENDRONATE SODIUM
     Indication: OSTEOPOROSIS
     Dosage: 70 MG, QW
     Route: 048
     Dates: start: 20050906, end: 20110207
  2. PREMPRO [Concomitant]
     Active Substance: ESTROGENS, CONJUGATED\MEDROXYPROGESTERONE ACETATE
     Indication: MENOPAUSE
     Dosage: UNK
     Dates: start: 20000718
  3. FOSAMAX [Suspect]
     Active Substance: ALENDRONATE SODIUM
     Indication: OSTEOPOROSIS
     Dosage: 70 MG, QW
     Route: 048
     Dates: start: 20010817, end: 201107
  4. NAPROXEN. [Concomitant]
     Active Substance: NAPROXEN
     Indication: PYREXIA
     Dosage: UNK
     Dates: start: 20010621, end: 20120314
  5. HORMONES (UNSPECIFIED) [Concomitant]
     Active Substance: UNSPECIFIED INGREDIENT
     Dosage: UNK
     Dates: start: 2000
  6. NAPROXEN. [Concomitant]
     Active Substance: NAPROXEN
     Indication: PAIN

REACTIONS (35)
  - Uvulopalatopharyngoplasty [Unknown]
  - Femur fracture [Unknown]
  - Foot fracture [Unknown]
  - Dyspepsia [Unknown]
  - Foot fracture [Unknown]
  - Tonsillectomy [Unknown]
  - Drug abuse [Unknown]
  - Thrombophlebitis [Unknown]
  - Arthralgia [Unknown]
  - Intramedullary rod insertion [Unknown]
  - Foot fracture [Unknown]
  - Depression [Unknown]
  - Spondylolysis [Unknown]
  - Polyp [Unknown]
  - Leukopenia [Unknown]
  - Haemorrhagic anaemia [Recovering/Resolving]
  - Low turnover osteopathy [Unknown]
  - Sneezing [Unknown]
  - Osteoarthritis [Unknown]
  - Hypogammaglobulinaemia [Unknown]
  - Road traffic accident [Unknown]
  - Intramedullary rod insertion [Unknown]
  - Calcium deficiency [Unknown]
  - Pain [Unknown]
  - Nasopharyngitis [Unknown]
  - Vitamin D deficiency [Unknown]
  - Goitre [Unknown]
  - Internal fixation of fracture [Recovering/Resolving]
  - Hypersensitivity [Unknown]
  - Rhinorrhoea [Unknown]
  - Anxiety [Unknown]
  - Contusion [Unknown]
  - Back pain [Unknown]
  - Femur fracture [Unknown]
  - Nasal discomfort [Unknown]

NARRATIVE: CASE EVENT DATE: 20031212
